FAERS Safety Report 8924025 (Version 1)
Quarter: 2012Q4

REPORT INFORMATION
  Report Type: Spontaneous
  Country: US (occurrence: None)
  Receive Date: 20121121
  Receipt Date: 20121121
  Transmission Date: 20130627
  Serious: Yes (Disabling, Other)
  Sender: FDA-Public Use
  Company Number: None

PATIENT
  Age: 44 Year
  Sex: Female
  Weight: 144.7 kg

DRUGS (4)
  1. VIIBRYD 10/20/40 MG DON^T KNOW [Suspect]
     Indication: MAJOR DEPRESSIVE DISORDER NOS
     Dosage: 10 MG, 1 PER DAY FOR 1 WEEK
     Route: 048
     Dates: start: 20121002, end: 20121115
  2. VIIBRYD 10/20/40 MG DON^T KNOW [Suspect]
     Indication: BIPOLAR DISORDER
     Dosage: 10 MG, 1 PER DAY FOR 1 WEEK
     Route: 048
     Dates: start: 20121002, end: 20121115
  3. VIIBRYD 10/20/40 MG DON^T KNOW [Suspect]
     Indication: MAJOR DEPRESSIVE DISORDER NOS
     Dosage: 20 MG 1 PER DAY FOR 1 WK, PO
     Route: 048
  4. VIIBRYD 10/20/40 MG DON^T KNOW [Suspect]
     Indication: BIPOLAR DISORDER
     Dosage: 20 MG 1 PER DAY FOR 1 WK, PO
     Route: 048

REACTIONS (5)
  - Agitation [None]
  - Anger [None]
  - Feeling abnormal [None]
  - Arthralgia [None]
  - Gait disturbance [None]
